FAERS Safety Report 12588145 (Version 1)
Quarter: 2016Q3

REPORT INFORMATION
  Report Type: Spontaneous
  Country: US (occurrence: US)
  Receive Date: 20160725
  Receipt Date: 20160725
  Transmission Date: 20161109
  Serious: No
  Sender: FDA-Public Use
  Company Number: US-PFIZER INC-2016323269

PATIENT
  Age: 67 Year
  Sex: Female

DRUGS (5)
  1. FENTANYL CITRATE. [Suspect]
     Active Substance: FENTANYL CITRATE
     Dosage: 25MCG/72HR
  2. LEVAQUIN [Suspect]
     Active Substance: LEVOFLOXACIN
     Dosage: 750 MG, UNK
  3. TESSALON [Suspect]
     Active Substance: BENZONATATE
     Dosage: 200 MG, UNK
  4. ALLEGRA D-12 HOUR [Suspect]
     Active Substance: FEXOFENADINE HYDROCHLORIDE\PSEUDOEPHEDRINE HYDROCHLORIDE
     Dosage: UNK
  5. BIAXIN [Suspect]
     Active Substance: CLARITHROMYCIN
     Dosage: 500 MG, UNK

REACTIONS (1)
  - Drug hypersensitivity [Unknown]
